FAERS Safety Report 15632389 (Version 1)
Quarter: 2018Q4

REPORT INFORMATION
  Report Type: Spontaneous
  Country: US (occurrence: US)
  Receive Date: 20181119
  Receipt Date: 20181119
  Transmission Date: 20190205
  Serious: No
  Sender: FDA-Public Use
  Company Number: US-TEVA-2018-US-973059

PATIENT
  Sex: Male

DRUGS (1)
  1. BACLO TAB [Suspect]
     Active Substance: BACLOFEN
     Indication: HEREDITARY SPASTIC PARAPLEGIA
     Route: 065

REACTIONS (2)
  - Muscle spasms [Unknown]
  - Insomnia [Unknown]
